FAERS Safety Report 24453003 (Version 1)
Quarter: 2024Q4

REPORT INFORMATION
  Report Type: Spontaneous
  Country: US (occurrence: US)
  Receive Date: 20241017
  Receipt Date: 20241017
  Transmission Date: 20250115
  Serious: No
  Sender: SUNOVION
  Company Number: US-UROVANT SCIENCES GMBH-202406-URV-000933

PATIENT
  Age: 75 Year
  Sex: Female
  Weight: 72.562 kg

DRUGS (1)
  1. GEMTESA [Suspect]
     Active Substance: VIBEGRON
     Indication: Pollakiuria
     Dosage: 1 TAB, QD, AT 7 AM, SINCE 2 WEEKS
     Route: 065
     Dates: start: 202406

REACTIONS (3)
  - Drug ineffective [Unknown]
  - Dehydration [Unknown]
  - Headache [Unknown]
